FAERS Safety Report 4581850-8 (Version None)
Quarter: 2005Q1

REPORT INFORMATION
  Report Type: 
  Country: None (occurrence: None)
  Receive Date: 20050214
  Receipt Date: 20040319
  Transmission Date: 20050727
  Serious: No
  Sender: FDA-Public Use
  Company Number: US-GLAXOSMITHKLINE-A0503520A

PATIENT
  Age: 9 Year
  Sex: Female

DRUGS (7)
  1. LAMICTAL [Suspect]
     Indication: EPILEPSY
     Dosage: 45MG PER DAY
     Route: 048
     Dates: start: 20040201
  2. KLONOPIN [Concomitant]
  3. TRILEPTAL [Concomitant]
  4. STRATTERA [Concomitant]
  5. KEPPRA [Concomitant]
  6. PHENOBARBITAL [Concomitant]
  7. TOPAMAX [Concomitant]

REACTIONS (1)
  - RASH [None]
